FAERS Safety Report 19443578 (Version 1)
Quarter: 2021Q2

REPORT INFORMATION
  Report Type: Spontaneous
  Country: US (occurrence: US)
  Receive Date: 20210621
  Receipt Date: 20210621
  Transmission Date: 20210717
  Serious: Yes (Other)
  Sender: FDA-Public Use
  Company Number: US-AMNEAL PHARMACEUTICALS-2021-AMRX-02139

PATIENT
  Age: 32 Year
  Sex: Male

DRUGS (9)
  1. OCALIVA [Suspect]
     Active Substance: OBETICHOLIC ACID
     Indication: PRODUCT USED FOR UNKNOWN INDICATION
     Dosage: 5 MILLIGRAM, QD
     Route: 048
     Dates: start: 20200612, end: 202103
  2. TYLENOL [Concomitant]
     Active Substance: ACETAMINOPHEN
     Indication: PRODUCT USED FOR UNKNOWN INDICATION
     Dosage: UNK
     Route: 065
  3. OCALIVA [Suspect]
     Active Substance: OBETICHOLIC ACID
     Dosage: 5 MILLIGRAM, QD
     Route: 048
     Dates: start: 202103, end: 2021
  4. AZATHIOPRINE. [Suspect]
     Active Substance: AZATHIOPRINE
     Dosage: 150 MILLIGRAM, QD
     Route: 065
     Dates: end: 202104
  5. AZATHIOPRINE. [Suspect]
     Active Substance: AZATHIOPRINE
     Indication: AUTOIMMUNE HEPATITIS
     Dosage: UNK
     Route: 065
  6. AZATHIOPRINE. [Suspect]
     Active Substance: AZATHIOPRINE
     Dosage: 100 MILLIGRAM, QD
     Route: 065
     Dates: start: 202104
  7. CHOLESTYRAMINE. [Suspect]
     Active Substance: CHOLESTYRAMINE
     Indication: PRODUCT USED FOR UNKNOWN INDICATION
     Dosage: UNK
     Route: 065
  8. URSODIOL. [Concomitant]
     Active Substance: URSODIOL
     Indication: PRODUCT USED FOR UNKNOWN INDICATION
     Dosage: UNK
     Route: 065
  9. CALCIUM [Concomitant]
     Active Substance: CALCIUM
     Indication: PRODUCT USED FOR UNKNOWN INDICATION
     Dosage: UNK
     Route: 065

REACTIONS (23)
  - Appendicitis [Unknown]
  - Cholelithiasis [Unknown]
  - Pancreatitis [Unknown]
  - Blood alkaline phosphatase increased [Unknown]
  - Disturbance in attention [Unknown]
  - Diarrhoea [Unknown]
  - Pyrexia [Recovered/Resolved]
  - Chills [Recovered/Resolved]
  - Alanine aminotransferase increased [Unknown]
  - Insomnia [Unknown]
  - Coagulopathy [Unknown]
  - Epistaxis [Unknown]
  - Toxicity to various agents [Unknown]
  - Aspartate aminotransferase increased [Unknown]
  - Headache [Recovered/Resolved]
  - Weight decreased [Recovering/Resolving]
  - Pruritus [Unknown]
  - Nausea [Recovered/Resolved]
  - Ascites [Unknown]
  - Sepsis [Unknown]
  - Thrombocytopenia [Unknown]
  - Fatigue [Unknown]
  - Blood bilirubin abnormal [Not Recovered/Not Resolved]

NARRATIVE: CASE EVENT DATE: 202011
